FAERS Safety Report 25617347 (Version 1)
Quarter: 2025Q3

REPORT INFORMATION
  Report Type: Spontaneous
  Country: US (occurrence: US)
  Receive Date: 20250729
  Receipt Date: 20250729
  Transmission Date: 20251021
  Serious: No
  Sender: CSL Plasma
  Company Number: US-CSLP-06512903498-V14447157-2

PATIENT
  Age: 19 Year
  Sex: Male

DRUGS (2)
  1. ANTICOAGULANT SODIUM CITRATE [Suspect]
     Active Substance: SODIUM CITRATE
     Indication: Anticoagulant therapy
     Route: 050
     Dates: start: 20250717, end: 20250717
  2. SALINE [Concomitant]
     Active Substance: SODIUM CHLORIDE
     Indication: Product used for unknown indication
     Dates: start: 20250717, end: 20250717

REACTIONS (9)
  - Dizziness [Recovered/Resolved]
  - Tetany [Recovered/Resolved]
  - Hypoaesthesia [Recovered/Resolved]
  - Feeling hot [Recovered/Resolved]
  - Vision blurred [Recovered/Resolved]
  - Abdominal pain [Recovered/Resolved]
  - Pallor [Recovered/Resolved]
  - Nausea [Recovered/Resolved]
  - Paraesthesia [Recovered/Resolved]

NARRATIVE: CASE EVENT DATE: 20250717
